FAERS Safety Report 11805830 (Version 1)
Quarter: 2015Q4

REPORT INFORMATION
  Report Type: Spontaneous
  Country: MY (occurrence: MY)
  Receive Date: 20151207
  Receipt Date: 20151207
  Transmission Date: 20160305
  Serious: Yes (Other)
  Sender: FDA-Public Use
  Company Number: MY-PAR PHARMACEUTICAL COMPANIES-2015SCPR014520

PATIENT

DRUGS (1)
  1. PITOCIN [Suspect]
     Active Substance: OXYTOCIN
     Indication: LABOUR STIMULATION
     Dosage: UNK UNK, UNKNOWN
     Route: 065

REACTIONS (4)
  - Caesarean section [Unknown]
  - Assisted delivery [Unknown]
  - Shoulder dystocia [Unknown]
  - Postpartum haemorrhage [Unknown]
